FAERS Safety Report 4780687-4 (Version None)
Quarter: 2005Q3

REPORT INFORMATION
  Report Type: 
  Country: None (occurrence: None)
  Receive Date: 20050927
  Receipt Date: 20050916
  Transmission Date: 20060218
  Serious: Yes (Hospitalization, Disabling)
  Sender: FDA-Public Use
  Company Number: US-MERCK-0509USA02367

PATIENT
  Age: 58 Year
  Sex: Female

DRUGS (8)
  1. VIOXX [Suspect]
     Indication: SHOULDER PAIN
     Route: 048
     Dates: start: 20030227, end: 20040101
  2. COVERA-HS [Concomitant]
     Route: 065
  3. TOPROL-XL [Concomitant]
     Route: 048
  4. PLAVIX [Concomitant]
     Route: 065
  5. LIPITOR [Concomitant]
     Route: 065
  6. VASOTEC [Concomitant]
     Route: 048
  7. HYDROCHLOROTHIAZIDE AND TRIAMTERENE [Concomitant]
     Route: 065
  8. BENICAR [Concomitant]
     Route: 065

REACTIONS (5)
  - ANGINA PECTORIS [None]
  - MYOCARDIAL INFARCTION [None]
  - PERICARDIOTOMY [None]
  - POSTPERICARDIOTOMY SYNDROME [None]
  - VENTRICULAR HYPOKINESIA [None]
